FAERS Safety Report 8129546-X (Version None)
Quarter: 2012Q1

REPORT INFORMATION
  Report Type: 
  Country: None (occurrence: None)
  Receive Date: 20120103
  Receipt Date: 20111108
  Transmission Date: 20120608
  Serious: No
  Sender: FDA-Public Use
  Company Number: AE-2011-003167

PATIENT
  Age: 60 Year
  Sex: Female
  Weight: 92.9874 kg

DRUGS (5)
  1. INCIVEK [Suspect]
     Dosage: 1125 MG (375 MG, 3 IN 1 D)
     Dates: start: 20111105
  2. PEGASYS [Concomitant]
  3. RIBASPHERE [Concomitant]
  4. BENICAR [Concomitant]
  5. ACETAMINOPHEN [Concomitant]

REACTIONS (4)
  - NAUSEA [None]
  - ARTHRALGIA [None]
  - INFLUENZA LIKE ILLNESS [None]
  - ANAL PRURITUS [None]
